FAERS Safety Report 8359982-8 (Version None)
Quarter: 2012Q2

REPORT INFORMATION
  Report Type: 
  Country: None (occurrence: None)
  Receive Date: 20120515
  Receipt Date: 20120509
  Transmission Date: 20120825
  Serious: Yes (Death)
  Sender: FDA-Public Use
  Company Number: PHHY2012DE040745

PATIENT
  Age: 87 Year
  Sex: Female
  Weight: 70 kg

DRUGS (8)
  1. AMITRIPTYLINE HCL [Concomitant]
     Dosage: 25 MG, DAILY
     Dates: start: 20090606
  2. ALLOPURINOL [Concomitant]
     Dosage: 150 MG, DAILY
     Dates: start: 20090606
  3. METOPROLOL TARTRATE [Concomitant]
     Dosage: 142.5 MG, DAILY
     Dates: start: 20090606
  4. PANTOPRAZOLE [Concomitant]
     Dosage: 80 MG, DAILY
     Dates: start: 20090606
  5. FUROSEMIDE [Concomitant]
     Dosage: 80 MG, DAILY
     Dates: start: 20090606
  6. EXJADE [Suspect]
     Indication: MYELODYSPLASTIC SYNDROME
     Dosage: UNK UKN, UNK
     Dates: start: 20110216
  7. EXJADE [Suspect]
     Dosage: 1000 MG, UNK
  8. FRAXIPARINE [Concomitant]
     Dosage: 0.6 ML, UNK
     Dates: start: 20090606

REACTIONS (1)
  - DEATH [None]
